FAERS Safety Report 22362554 (Version 1)
Quarter: 2023Q2

REPORT INFORMATION
  Report Type: Spontaneous
  Country: AU (occurrence: AU)
  Receive Date: 20230524
  Receipt Date: 20230524
  Transmission Date: 20230721
  Serious: Yes (Hospitalization)
  Sender: FDA-Public Use
  Company Number: AU-APIL-2314851US

PATIENT

DRUGS (7)
  1. BOTOX [Suspect]
     Active Substance: ONABOTULINUMTOXINA
     Indication: Migraine
     Dosage: UNK UNK, SINGLE
  2. VALPROATE [Suspect]
     Active Substance: VALPROIC ACID
     Indication: Product used for unknown indication
  3. LAMOTRIGINE [Suspect]
     Active Substance: LAMOTRIGINE
     Indication: Product used for unknown indication
  4. LIGNOCAINE INJECTION [Concomitant]
  5. CHLORPROMAZINE [Concomitant]
     Active Substance: CHLORPROMAZINE
     Route: 042
  6. KETAMINE [Concomitant]
     Active Substance: KETAMINE
  7. TOPIRAMATE [Concomitant]
     Active Substance: TOPIRAMATE

REACTIONS (4)
  - Hypnopompic hallucination [Unknown]
  - Headache [Unknown]
  - Aura [Not Recovered/Not Resolved]
  - Drug intolerance [Unknown]
